FAERS Safety Report 7826883-0 (Version None)
Quarter: 2011Q4

REPORT INFORMATION
  Report Type: 
  Country: None (occurrence: None)
  Receive Date: 20111018
  Receipt Date: 20111003
  Transmission Date: 20120403
  Serious: Yes (Other)
  Sender: FDA-Public Use
  Company Number: MPS1-1000564

PATIENT
  Age: 19 Year
  Sex: Male
  Weight: 34.7 kg

DRUGS (1)
  1. ALDURAZYME [Suspect]
     Indication: MUCOPOLYSACCHARIDOSIS I
     Dosage: 20.3 MG, QD, INTRAVENOUS
     Route: 042
     Dates: start: 20060705

REACTIONS (2)
  - DEVICE RELATED INFECTION [None]
  - POOR VENOUS ACCESS [None]
